FAERS Safety Report 7823007-0 (Version None)
Quarter: 2011Q4

REPORT INFORMATION
  Report Type: 
  Country: None (occurrence: None)
  Receive Date: 20111018
  Receipt Date: 20110523
  Transmission Date: 20120403
  Serious: No
  Sender: FDA-Public Use
  Company Number: US-ASTRAZENECA-2011SE31756

PATIENT
  Sex: Female

DRUGS (6)
  1. SPIRIVA [Concomitant]
  2. XOPENEX [Concomitant]
  3. SYMBICORT [Suspect]
     Route: 055
  4. HUMALOG [Concomitant]
  5. SINGULAIR [Concomitant]
  6. NASONEX [Concomitant]

REACTIONS (2)
  - CARDIAC DISORDER [None]
  - GASTROINTESTINAL DISORDER [None]
